FAERS Safety Report 5625471-4 (Version None)
Quarter: 2008Q1

REPORT INFORMATION
  Report Type: 
  Country: None (occurrence: None)
  Receive Date: 20080208
  Receipt Date: 20080204
  Transmission Date: 20080703
  Serious: Yes (Other)
  Sender: FDA-Public Use
  Company Number: 2008003102

PATIENT
  Age: 64 Year
  Sex: Female

DRUGS (1)
  1. LISTERINE WHITENING PRE-BRUSH RINSE (NO ACTIVE INGREDIENT) [Suspect]
     Dosage: 1/2 CUP ONCE, ORAL
     Route: 048
     Dates: start: 20080129, end: 20080129

REACTIONS (5)
  - INCORRECT ROUTE OF DRUG ADMINISTRATION [None]
  - INTENTIONAL DRUG MISUSE [None]
  - LIP BLISTER [None]
  - THERMAL BURN [None]
  - WRONG TECHNIQUE IN DRUG USAGE PROCESS [None]
